FAERS Safety Report 7163654-5 (Version None)
Quarter: 2010Q4

REPORT INFORMATION
  Report Type: 
  Country: None (occurrence: None)
  Receive Date: 20101215
  Receipt Date: 20100525
  Transmission Date: 20110411
  Serious: Yes (Other)
  Sender: FDA-Public Use
  Company Number: CA-PFIZER INC-2010054896

PATIENT
  Age: 64 Year
  Sex: Female
  Weight: 74.376 kg

DRUGS (11)
  1. LYRICA [Suspect]
     Indication: FIBROMYALGIA
     Dosage: 25 MG, 1X/DAY
  2. LYRICA [Suspect]
     Dosage: 50 MG, 1X/DAY
  3. LYRICA [Suspect]
     Dosage: 75 MG, 1X/DAY
     Dates: end: 20100428
  4. DILAUDID [Concomitant]
     Indication: BONE PAIN
     Dosage: 2 MG, 3X/DAY
  5. RABEPRAZOLE [Concomitant]
     Indication: HIATUS HERNIA
     Dosage: 20 MG, 1X/DAY
  6. AMITRIPTYLINE [Concomitant]
     Dosage: 25 MG, 1X/DAY AT NIGHT
  7. CALCIUM [Concomitant]
     Dosage: UNK
  8. MAGNESIUM [Concomitant]
     Dosage: UNK
  9. LOVAZA [Concomitant]
     Dosage: UNK
  10. VITAMIN D [Concomitant]
     Dosage: UNK
  11. VITALUX [Concomitant]
     Indication: MACULAR DEGENERATION
     Dosage: UNK

REACTIONS (3)
  - INSOMNIA [None]
  - PALPITATIONS [None]
  - URINE FLOW DECREASED [None]
